FAERS Safety Report 8093687-6 (Version None)
Quarter: 2012Q1

REPORT INFORMATION
  Report Type: 
  Country: None (occurrence: None)
  Receive Date: 20120129
  Receipt Date: 20111026
  Transmission Date: 20120608
  Serious: No
  Sender: FDA-Public Use
  Company Number: US-ABBOTT-11P-163-0868556-00

PATIENT
  Age: 51 Year
  Sex: Male

DRUGS (9)
  1. ASACOL [Concomitant]
     Indication: CROHN'S DISEASE
  2. BUSPIRONE HCL [Concomitant]
     Indication: DEPRESSION
  3. HYDROCHLOROTHIAZIDE [Concomitant]
     Indication: BLOOD PRESSURE
  4. HUMIRA [Suspect]
     Indication: CROHN'S DISEASE
     Dates: start: 20110802
  5. ROPINIROLE [Concomitant]
     Indication: RESTLESS LEGS SYNDROME
     Dosage: AT BEDTIME
  6. ATENOLOL [Concomitant]
     Indication: BLOOD PRESSURE
  7. DICYCLOMINE [Concomitant]
     Indication: CROHN'S DISEASE
  8. XANAX [Concomitant]
     Indication: ANXIETY
     Dosage: GENERIC
  9. MULTI-VITAMINS [Concomitant]
     Indication: VITAMIN SUPPLEMENTATION
     Dosage: DAILY

REACTIONS (5)
  - ARTHRALGIA [None]
  - COUGH [None]
  - DRUG INEFFECTIVE [None]
  - FATIGUE [None]
  - CROHN'S DISEASE [None]
